FAERS Safety Report 16781086 (Version 1)
Quarter: 2019Q4

REPORT INFORMATION
  Report Type: Spontaneous
  Country: US (occurrence: US)
  Receive Date: 20190906
  Receipt Date: 20190906
  Transmission Date: 20200122
  Serious: No
  Sender: FDA-Public Use
  Company Number: None

PATIENT
  Age: 60 Year
  Sex: Female
  Weight: 49.5 kg

DRUGS (5)
  1. DIVALPROEX EC 500MG TAB UNI [Suspect]
     Active Substance: DIVALPROEX SODIUM
     Indication: SEIZURE PROPHYLAXIS
     Dosage: ?          QUANTITY:1 TABLET(S);?
     Route: 048
     Dates: start: 20180312, end: 20190601
  2. HYDROCHLOROTHIAZIDE. [Concomitant]
     Active Substance: HYDROCHLOROTHIAZIDE
  3. VITAMINS C [Concomitant]
  4. LISINOPRIL. [Concomitant]
     Active Substance: LISINOPRIL
  5. D [Concomitant]

REACTIONS (6)
  - Rash [None]
  - Trichorrhexis [None]
  - Nail avulsion [None]
  - Psoriasis [None]
  - Onychoclasis [None]
  - Alopecia [None]

NARRATIVE: CASE EVENT DATE: 20180701
